FAERS Safety Report 6237482-9 (Version None)
Quarter: 2009Q2

REPORT INFORMATION
  Report Type: 
  Country: None (occurrence: None)
  Receive Date: 20090619
  Receipt Date: 20081107
  Transmission Date: 20091009
  Serious: No
  Sender: FDA-Public Use
  Company Number: US-AMGEN-KDL318514

PATIENT
  Age: 77 Year
  Sex: Male

DRUGS (4)
  1. PROCRIT [Suspect]
     Indication: RENAL FAILURE CHRONIC
     Route: 058
     Dates: start: 20080101
  2. ARANESP [Suspect]
  3. DOBUTAMINE HCL [Concomitant]
  4. DOBUTAMINE HCL [Concomitant]

REACTIONS (2)
  - FEELING ABNORMAL [None]
  - THERAPEUTIC RESPONSE DECREASED [None]
